FAERS Safety Report 23233214 (Version 1)
Quarter: 2023Q4

REPORT INFORMATION
  Report Type: Spontaneous
  Country: US (occurrence: US)
  Receive Date: 20231128
  Receipt Date: 20231128
  Transmission Date: 20240109
  Serious: No
  Sender: FDA-Public Use
  Company Number: US-SANDOZ-SDZ2023US060297

PATIENT
  Age: 10 Year
  Sex: Male
  Weight: 27 kg

DRUGS (2)
  1. OMNITROPE [Suspect]
     Active Substance: SOMATROPIN
     Indication: Short stature
     Dosage: 1.2 MG 2 DOSE EVERY N/A N/A
     Route: 058
     Dates: start: 20230816
  2. OMNITROPE [Suspect]
     Active Substance: SOMATROPIN
     Indication: Short stature
     Dosage: 1.2 MG 2 DOSE EVERY N/A N/A
     Route: 058
     Dates: start: 20230816

REACTIONS (3)
  - Pain [Unknown]
  - Injection site pain [Unknown]
  - Device issue [Unknown]

NARRATIVE: CASE EVENT DATE: 20230816
